FAERS Safety Report 6497149-9 (Version None)
Quarter: 2009Q4

REPORT INFORMATION
  Report Type: 
  Country: None (occurrence: None)
  Receive Date: 20091215
  Receipt Date: 20090414
  Transmission Date: 20100525
  Serious: No
  Sender: FDA-Public Use
  Company Number: A0778748A

PATIENT
  Age: 62 Year
  Sex: Male

DRUGS (5)
  1. AVODART [Suspect]
     Indication: BENIGN PROSTATIC HYPERPLASIA
     Dosage: 1CAP PER DAY
     Route: 048
     Dates: start: 20090222
  2. INSULIN [Concomitant]
  3. METFORMIN HCL [Concomitant]
  4. ALTACE [Concomitant]
  5. METOPROLOL [Concomitant]

REACTIONS (2)
  - INSOMNIA [None]
  - PRURITUS [None]
